FAERS Safety Report 20893016 (Version 2)
Quarter: 2022Q3

REPORT INFORMATION
  Report Type: Spontaneous
  Country: US (occurrence: US)
  Receive Date: 20220531
  Receipt Date: 20220707
  Transmission Date: 20221026
  Serious: Yes (Hospitalization)
  Sender: FDA-Public Use
  Company Number: US-BRISTOL-MYERS SQUIBB COMPANY-2022-045922

PATIENT
  Age: 72 Year
  Sex: Female
  Weight: 101.1 kg

DRUGS (2)
  1. REVLIMID [Suspect]
     Active Substance: LENALIDOMIDE
     Indication: Plasma cell myeloma
     Dosage: D1-28
     Route: 048
     Dates: start: 20211028
  2. REVLIMID [Suspect]
     Active Substance: LENALIDOMIDE
     Dosage: 1 CAPSULE
     Route: 048

REACTIONS (6)
  - Pain [Unknown]
  - Malaise [Unknown]
  - Sleep disorder [Unknown]
  - Decreased appetite [Unknown]
  - Herpes zoster [Recovering/Resolving]
  - White blood cell count decreased [Recovering/Resolving]
